FAERS Safety Report 4335762-5 (Version None)
Quarter: 2004Q2

REPORT INFORMATION
  Report Type: 
  Country: None (occurrence: None)
  Receive Date: 20040409
  Receipt Date: 20040406
  Transmission Date: 20050107
  Serious: Yes (Death, Hospitalization)
  Sender: FDA-Public Use
  Company Number: US-BRISTOL-MYERS SQUIBB COMPANY-12551883

PATIENT
  Sex: Female

DRUGS (25)
  1. CYCLOPHOSPHAMIDE [Suspect]
     Indication: BREAST CANCER
  2. PACLITAXEL [Suspect]
     Indication: BREAST CANCER
  3. DOXORUBICIN [Suspect]
     Indication: BREAST CANCER
  4. ETANERCEPT [Suspect]
     Indication: WEGENER'S GRANULOMATOSIS
     Dates: start: 20001201, end: 20030916
  5. AZATHIOPRINE [Suspect]
     Indication: WEGENER'S GRANULOMATOSIS
  6. OMEPRAZOLE [Concomitant]
  7. INSULIN [Concomitant]
  8. BUMETANIDE [Concomitant]
  9. CLOPIDOGREL BISULFATE [Concomitant]
  10. POTASSIUM CHLORIDE [Concomitant]
  11. AZITHROMYCIN [Concomitant]
  12. METOPROLOL [Concomitant]
  13. ALBUTEROL SULFATE [Concomitant]
  14. IPRATROPIUM BROMIDE [Concomitant]
  15. OXYGEN [Concomitant]
  16. LISINOPRIL [Concomitant]
  17. DICLOFENAC SODIUM [Concomitant]
  18. CLOTRIMAZOLE [Concomitant]
  19. TYLOX [Concomitant]
  20. AMITRIPTYLINE HCL [Concomitant]
  21. ASPIRIN [Concomitant]
  22. SIMVASTATIN [Concomitant]
  23. TRIMETHOPRIM-SULFAMETHOXAZOLE [Concomitant]
  24. GLYCERYL TRINITRATE [Concomitant]
  25. ACETAMINOPHEN [Concomitant]

REACTIONS (7)
  - ANAEMIA [None]
  - BREAST CANCER [None]
  - CARDIAC ARREST [None]
  - HYPOTENSION [None]
  - MOUTH ULCERATION [None]
  - POST PROCEDURAL COMPLICATION [None]
  - SINUS TACHYCARDIA [None]
